FAERS Safety Report 7728341-0 (Version None)
Quarter: 2011Q3

REPORT INFORMATION
  Report Type: 
  Country: None (occurrence: None)
  Receive Date: 20110905
  Receipt Date: 20110831
  Transmission Date: 20111222
  Serious: Yes (Other)
  Sender: FDA-Public Use
  Company Number: PHEH2011US01366

PATIENT
  Sex: Female
  Weight: 52.2 kg

DRUGS (2)
  1. PRED [Concomitant]
     Indication: EYE INFECTION
     Dosage: UNK UKN, UNK
     Dates: start: 20090101
  2. EXJADE [Suspect]
     Indication: IRON OVERLOAD
     Dosage: 500 MG, TID
     Route: 048
     Dates: start: 20060401, end: 20110501

REACTIONS (4)
  - DYSPEPSIA [None]
  - ABORTION SPONTANEOUS [None]
  - ANAEMIA MACROCYTIC [None]
  - MATERNAL EXPOSURE DURING PREGNANCY [None]
